FAERS Safety Report 9833765 (Version 1)
Quarter: 2014Q1

REPORT INFORMATION
  Report Type: Spontaneous
  Country: US (occurrence: US)
  Receive Date: 20140122
  Receipt Date: 20140122
  Transmission Date: 20141002
  Serious: No
  Sender: FDA-Public Use
  Company Number: US-BIOGENIDEC-2014BI004367

PATIENT
  Age: 44 Year
  Sex: Female

DRUGS (3)
  1. TECFIDERA [Suspect]
     Indication: MULTIPLE SCLEROSIS
     Route: 048
     Dates: start: 20131017, end: 20140108
  2. NEXIUM [Concomitant]
  3. DULOXETINE [Concomitant]

REACTIONS (3)
  - Fatigue [Recovered/Resolved]
  - Myalgia [Recovered/Resolved]
  - Hypoaesthesia [Recovered/Resolved]
